FAERS Safety Report 5042776-9 (Version None)
Quarter: 2006Q2

REPORT INFORMATION
  Report Type: 
  Country: None (occurrence: None)
  Receive Date: 20060601
  Receipt Date: 20060223
  Transmission Date: 20061013
  Serious: No
  Sender: FDA-Public Use
  Company Number: 2006PV009228

PATIENT
  Age: 70 Year
  Sex: Female
  Weight: 67.586 kg

DRUGS (3)
  1. BYETTA [Suspect]
     Indication: DIABETES MELLITUS NON-INSULIN-DEPENDENT
     Dosage: 5 MCG;BID;SC
     Route: 058
     Dates: start: 20060221
  2. ACIPHEX [Concomitant]
  3. LISINOPRIL [Concomitant]

REACTIONS (9)
  - ABDOMINAL PAIN UPPER [None]
  - DYSPEPSIA [None]
  - FEELING ABNORMAL [None]
  - GASTROOESOPHAGEAL REFLUX DISEASE [None]
  - NAUSEA [None]
  - PAIN [None]
  - RETCHING [None]
  - VOMITING [None]
  - WEIGHT DECREASED [None]
